FAERS Safety Report 7425404 (Version 4)
Quarter: 2017Q2

REPORT INFORMATION
  Report Type: Spontaneous
  Country: US (occurrence: US)
  Receive Date: 20100618
  Receipt Date: 20170420
  Transmission Date: 20170830
  Serious: Yes (Other)
  Sender: FDA-Public Use
  Company Number: US-ROCHE-686339

PATIENT
  Age: 24 Year
  Sex: Female
  Weight: 55.3 kg

DRUGS (5)
  1. ACCUTANE [Suspect]
     Active Substance: ISOTRETINOIN
     Dosage: FREQUENCY:QD
     Route: 048
  2. ACCUTANE [Suspect]
     Active Substance: ISOTRETINOIN
     Indication: ACNE CYSTIC
     Route: 048
     Dates: start: 200105, end: 20010612
  3. MINOCIN [Concomitant]
     Active Substance: MINOCYCLINE HYDROCHLORIDE
     Route: 065
  4. CLARAVIS [Suspect]
     Active Substance: ISOTRETINOIN
     Indication: ACNE CYSTIC
     Route: 065
     Dates: start: 200502, end: 200505
  5. AMNESTEEM [Suspect]
     Active Substance: ISOTRETINOIN
     Indication: ACNE CYSTIC
     Route: 065
     Dates: start: 200506, end: 200507

REACTIONS (15)
  - Headache [Unknown]
  - Tonsillitis [Unknown]
  - Neck mass [Unknown]
  - Inflammatory bowel disease [Unknown]
  - Proctitis [Unknown]
  - Depression [Unknown]
  - Oral herpes [Unknown]
  - Lip dry [Unknown]
  - Dry skin [Not Recovered/Not Resolved]
  - Pharyngitis [Unknown]
  - Proctitis ulcerative [Unknown]
  - Clostridium difficile infection [Unknown]
  - Diverticulitis [Unknown]
  - Vision blurred [Unknown]
  - Folliculitis [Not Recovered/Not Resolved]

NARRATIVE: CASE EVENT DATE: 20010612
